FAERS Safety Report 22348965 (Version 2)
Quarter: 2023Q2

REPORT INFORMATION
  Report Type: Spontaneous
  Country: AT (occurrence: AT)
  Receive Date: 20230522
  Receipt Date: 20230526
  Transmission Date: 20230721
  Serious: Yes (Hospitalization, Other)
  Sender: FDA-Public Use
  Company Number: AT-002147023-NVSC2023AT066168

PATIENT
  Age: 41 Year
  Sex: Male
  Weight: 78 kg

DRUGS (5)
  1. ADALIMUMAB [Suspect]
     Active Substance: ADALIMUMAB
     Indication: Hidradenitis
     Dosage: 80 MILLIGRAM
     Route: 058
     Dates: start: 20211014
  2. ADALIMUMAB [Suspect]
     Active Substance: ADALIMUMAB
     Dosage: 40 MILLIGRAM, QWK
     Route: 058
  3. ADALIMUMAB [Suspect]
     Active Substance: ADALIMUMAB
     Dosage: 40 MILLIGRAM, Q2WK
     Route: 058
     Dates: end: 202207
  4. TOCILIZUMAB [Concomitant]
     Active Substance: TOCILIZUMAB
     Indication: Product used for unknown indication
     Dosage: UNK
     Route: 065
  5. METHOTREXATE SODIUM [Concomitant]
     Active Substance: METHOTREXATE SODIUM
     Dosage: UNK

REACTIONS (7)
  - Parainfluenzae virus infection [Recovered/Resolved]
  - Pneumonia [Recovered/Resolved]
  - Respiratory failure [Recovered/Resolved]
  - Cough [Recovered/Resolved]
  - Pyrexia [Recovered/Resolved]
  - Dyspnoea [Recovered/Resolved]
  - Off label use [Unknown]

NARRATIVE: CASE EVENT DATE: 20220727
